FAERS Safety Report 4945746-1 (Version None)
Quarter: 2006Q1

REPORT INFORMATION
  Report Type: 
  Country: None (occurrence: None)
  Receive Date: 20060316
  Receipt Date: 20060309
  Transmission Date: 20060701
  Serious: Yes (Hospitalization)
  Sender: FDA-Public Use
  Company Number: JP-AVENTIS-200610775JP

PATIENT
  Age: 43 Year
  Sex: Female

DRUGS (8)
  1. ALLEGRA [Suspect]
  2. TOMIRON [Concomitant]
  3. TRANEXAMIC ACID [Concomitant]
  4. METHISTA [Concomitant]
  5. CONFATANIN [Concomitant]
  6. VERAPAMIL [Concomitant]
  7. DEPAS [Concomitant]
  8. FERROMIA [Concomitant]

REACTIONS (2)
  - LOSS OF CONSCIOUSNESS [None]
  - MALAISE [None]
